FAERS Safety Report 18802787 (Version 3)
Quarter: 2021Q3

REPORT INFORMATION
  Report Type: Report from Study
  Country: DE (occurrence: DE)
  Receive Date: 20210129
  Receipt Date: 20210804
  Transmission Date: 20211014
  Serious: Yes (Hospitalization)
  Sender: FDA-Public Use
  Company Number: DE-B.I. PHARMACEUTICALS,INC./RIDGEFIELD-2020-BI-069824

PATIENT
  Age: 74 Year
  Sex: Female

DRUGS (17)
  1. PK MERZ [Suspect]
     Active Substance: AMANTADINE SULFATE
     Dosage: 100 MG, BID
     Route: 048
     Dates: start: 2004, end: 20201121
  2. RIVASTIGMINE. [Concomitant]
     Active Substance: RIVASTIGMINE
     Indication: HYPERCHOLESTEROLAEMIA
     Dosage: 3 MG, OD
     Route: 048
     Dates: start: 20200527
  3. CLARIUM [PIRIBEDIL] [Suspect]
     Active Substance: PIRIBEDIL
     Dosage: 50 MG, OD
     Route: 048
     Dates: start: 20201119, end: 20201121
  4. ISICOM [Concomitant]
     Active Substance: CARBIDOPA\LEVODOPA
     Indication: PARKINSON^S DISEASE
     Dosage: 0.5 DF, 6/DAY
     Route: 048
  5. SIFROL [Suspect]
     Active Substance: PRAMIPEXOLE
     Indication: PARKINSON^S DISEASE
     Dosage: 1.05 MG, OD
     Route: 048
     Dates: start: 2004, end: 20201121
  6. CLARIUM [PIRIBEDIL] [Suspect]
     Active Substance: PIRIBEDIL
     Indication: PARKINSON^S DISEASE
     Dosage: 50 MG, BID
     Route: 048
     Dates: start: 2004, end: 20201121
  7. QUETIAPINE. [Concomitant]
     Active Substance: QUETIAPINE
     Indication: DEPRESSION
     Dosage: 25 MG, OD
     Route: 048
     Dates: start: 20200122
  8. XADAGO [Suspect]
     Active Substance: SAFINAMIDE MESYLATE
     Dosage: 50 MG, OD
     Route: 048
     Dates: start: 20200123, end: 20201121
  9. ISICOM [Concomitant]
     Active Substance: CARBIDOPA\LEVODOPA
     Indication: PARKINSON^S DISEASE
     Dosage: 1 DF, OD
     Route: 048
  10. ISICOM [Concomitant]
     Active Substance: CARBIDOPA\LEVODOPA
     Dosage: 1 DF, OD
     Route: 048
  11. XADAGO [Suspect]
     Active Substance: SAFINAMIDE MESYLATE
     Indication: PARKINSON^S DISEASE
     Dosage: 50 MG, OD
     Route: 048
     Dates: start: 20201210
  12. ISICOM [Concomitant]
     Active Substance: CARBIDOPA\LEVODOPA
     Dosage: 1 DF, OD
     Route: 048
     Dates: start: 2017, end: 202011
  13. PREGABALIN. [Concomitant]
     Active Substance: PREGABALIN
     Indication: NEURALGIA
     Dosage: 25 MG, OD
     Route: 048
     Dates: start: 20200122
  14. SIMVASTATIN. [Concomitant]
     Active Substance: SIMVASTATIN
     Indication: HYPERCHOLESTEROLAEMIA
     Dosage: 20 MG, OD
     Route: 048
     Dates: start: 2003
  15. ACETYLSALICYLIC ACID [Concomitant]
     Active Substance: ASPIRIN
     Indication: PLATELET AGGREGATION INHIBITION
     Dosage: 100 MG, OD
     Route: 048
     Dates: start: 2003
  16. PK MERZ [Suspect]
     Active Substance: AMANTADINE SULFATE
     Indication: PARKINSON^S DISEASE
     Dosage: 100 MG, OD
     Route: 048
     Dates: start: 20201210
  17. ISICOM [Concomitant]
     Active Substance: CARBIDOPA\LEVODOPA
     Dosage: 0.5 DF, 6/DAY
     Route: 048
     Dates: start: 2017, end: 202011

REACTIONS (5)
  - Hallucination, visual [Recovered/Resolved]
  - Dyskinesia [Recovered/Resolved]
  - Fall [Recovering/Resolving]
  - Dyskinesia [Recovering/Resolving]
  - Labelled drug-drug interaction medication error [Unknown]

NARRATIVE: CASE EVENT DATE: 20200123
